FAERS Safety Report 10237729 (Version 2)
Quarter: 2014Q2

REPORT INFORMATION
  Report Type: Report from Study
  Country: US (occurrence: US)
  Receive Date: 20140616
  Receipt Date: 20140626
  Transmission Date: 20141212
  Serious: Yes (Other)
  Sender: FDA-Public Use
  Company Number: US-ROCHE-1415211

PATIENT
  Age: 57 Year
  Sex: Female
  Weight: 88.98 kg

DRUGS (8)
  1. KADCYLA [Suspect]
     Indication: BREAST CANCER
     Route: 042
     Dates: start: 20140604
  2. HERCEPTIN [Suspect]
     Indication: BREAST CANCER
     Route: 042
  3. XELODA [Suspect]
     Indication: BREAST CANCER METASTATIC
     Route: 048
     Dates: start: 20130428
  4. XELODA [Suspect]
     Route: 048
     Dates: start: 201309, end: 201405
  5. TYKERB [Suspect]
     Indication: BREAST CANCER
     Route: 065
  6. TAXOL [Suspect]
     Indication: BREAST CANCER
     Route: 065
     Dates: start: 2012
  7. VITAMIN C [Concomitant]
     Indication: NUTRITIONAL SUPPLEMENTATION
     Dosage: STARTED YEARS AGO
     Route: 048
  8. VITAMIN B12 [Concomitant]
     Indication: NUTRITIONAL SUPPLEMENTATION
     Dosage: STARTED YEARS AGO
     Route: 048

REACTIONS (10)
  - Femur fracture [Recovered/Resolved]
  - Headache [Recovered/Resolved]
  - Alopecia [Recovered/Resolved]
  - Diarrhoea [Recovered/Resolved]
  - Palmar-plantar erythrodysaesthesia syndrome [Recovered/Resolved]
  - Weight decreased [Unknown]
  - Food craving [Recovering/Resolving]
  - Muscle spasms [Recovered/Resolved]
  - Blood urine present [Not Recovered/Not Resolved]
  - Pain in extremity [Not Recovered/Not Resolved]
